FAERS Safety Report 14345267 (Version 1)
Quarter: 2018Q1

REPORT INFORMATION
  Report Type: Report from Study
  Country: KR (occurrence: KR)
  Receive Date: 20180103
  Receipt Date: 20180103
  Transmission Date: 20180509
  Serious: Yes (Other)
  Sender: FDA-Public Use
  Company Number: KR-ASTELLAS-2018US000288

PATIENT

DRUGS (6)
  1. ERLOTINIB [Suspect]
     Active Substance: ERLOTINIB
     Indication: PANCREATIC CARCINOMA
     Dosage: 100 MG, ONCE DAILY ON A 4-WEEK CYCLE
     Route: 065
  2. CAPECITABINE. [Suspect]
     Active Substance: CAPECITABINE
     Indication: PANCREATIC CARCINOMA
     Route: 065
  3. OXALIPLATIN. [Suspect]
     Active Substance: OXALIPLATIN
     Indication: PANCREATIC CARCINOMA
     Dosage: UNK, UNKNOWN FREQ.
     Route: 065
  4. GEMCITABINE [Suspect]
     Active Substance: GEMCITABINE\GEMCITABINE HYDROCHLORIDE
     Indication: PANCREATIC CARCINOMA
     Dosage: 1000 MG/M2, UNKNOWN FREQ.  ON DAYS 1, 8, AND 15 ON A 4-WEEK CYCLE
     Route: 065
  5. LEUKOVORIN [Suspect]
     Active Substance: LEUCOVORIN SODIUM
     Indication: PANCREATIC CARCINOMA
     Route: 065
  6. 5-FLUOROURACIL                     /00098801/ [Suspect]
     Active Substance: FLUOROURACIL
     Indication: PANCREATIC CARCINOMA
     Dosage: 1000 MG/M2, UNKNOWN FREQ. ON D1-3 AND D29-31 (N=7)
     Route: 065

REACTIONS (8)
  - Ulcer [Unknown]
  - Abdominal pain [Unknown]
  - Intentional product use issue [Unknown]
  - Off label use [Unknown]
  - Duodenal stenosis [Unknown]
  - Haematotoxicity [Unknown]
  - Gastric haemorrhage [Unknown]
  - Nausea [Unknown]
